FAERS Safety Report 7731360-1 (Version None)
Quarter: 2011Q3

REPORT INFORMATION
  Report Type: 
  Country: None (occurrence: None)
  Receive Date: 20110906
  Receipt Date: 20110624
  Transmission Date: 20111222
  Serious: No
  Sender: FDA-Public Use
  Company Number: US-AMGEN-USASP2011032447

PATIENT
  Sex: Female

DRUGS (3)
  1. CALCIUM WITH VITAMIN D             /00944201/ [Concomitant]
     Dosage: UNK
  2. PROLIA [Suspect]
     Indication: OSTEOPOROSIS POSTMENOPAUSAL
     Dosage: UNK UNK, Q6MO
     Dates: start: 20110214
  3. ALLEGRA [Concomitant]

REACTIONS (5)
  - PAIN IN JAW [None]
  - GAIT DISTURBANCE [None]
  - ARTHRALGIA [None]
  - JOINT STIFFNESS [None]
  - DYSSTASIA [None]
